FAERS Safety Report 6508293-1 (Version None)
Quarter: 2009Q4

REPORT INFORMATION
  Report Type: 
  Country: None (occurrence: None)
  Receive Date: 20091221
  Receipt Date: 20081111
  Transmission Date: 20100525
  Serious: No
  Sender: FDA-Public Use
  Company Number: US-ASTRAZENECA-2008UW18999

PATIENT
  Age: 559 Month
  Sex: Male
  Weight: 88.5 kg

DRUGS (1)
  1. CRESTOR [Suspect]
     Indication: BLOOD CHOLESTEROL INCREASED
     Route: 048
     Dates: start: 20050101, end: 20080829

REACTIONS (2)
  - HYPOAESTHESIA [None]
  - PARAESTHESIA [None]
